FAERS Safety Report 24821075 (Version 1)
Quarter: 2025Q1

REPORT INFORMATION
  Report Type: Spontaneous
  Country: CA (occurrence: US)
  Receive Date: 20250108
  Receipt Date: 20250108
  Transmission Date: 20250408
  Serious: No
  Sender: SANOFI AVENTIS
  Company Number: CA-SA-2025SA002998

PATIENT

DRUGS (8)
  1. DUPIXENT [Suspect]
     Active Substance: DUPILUMAB
  2. METHOTREXATE [Suspect]
     Active Substance: METHOTREXATE
  3. CLOBETASOL [Suspect]
     Active Substance: CLOBETASOL
  4. AZATHIOPRINE [Concomitant]
     Active Substance: AZATHIOPRINE
  5. BETAMETHASONE [Concomitant]
     Active Substance: BETAMETHASONE
     Dosage: AROUND 1MG PER DAY
  6. BETAMETHASONE [Concomitant]
     Active Substance: BETAMETHASONE
     Dosage: 1MG PER DAY
  7. PREDNISOLONE [Concomitant]
     Active Substance: PREDNISOLONE
     Route: 048
  8. CYCLOSPORINE [Concomitant]
     Active Substance: CYCLOSPORINE

REACTIONS (4)
  - Topical steroid withdrawal reaction [Unknown]
  - Sleep disorder due to a general medical condition [Unknown]
  - Insomnia [Unknown]
  - Eczema [Recovered/Resolved]
